FAERS Safety Report 18484698 (Version 1)
Quarter: 2020Q4

REPORT INFORMATION
  Report Type: Spontaneous
  Country: DE (occurrence: DE)
  Receive Date: 20201110
  Receipt Date: 20201110
  Transmission Date: 20210114
  Serious: Yes (Hospitalization, Other)
  Sender: FDA-Public Use
  Company Number: DE-TEVA-2020-DE-1846116

PATIENT
  Age: 86 Year
  Sex: Male

DRUGS (2)
  1. LEVETIRACETAM ARISTO 250 MG [Suspect]
     Active Substance: LEVETIRACETAM
     Dosage: 2X1, UNIT DOSE : 500 MG
     Dates: start: 20201007
  2. CIPROFLOXACIN. [Suspect]
     Active Substance: CIPROFLOXACIN
     Route: 065

REACTIONS (5)
  - Erythema [Unknown]
  - Drug reaction with eosinophilia and systemic symptoms [Unknown]
  - Body temperature increased [Unknown]
  - Eosinophilia [Unknown]
  - Drug eruption [Unknown]

NARRATIVE: CASE EVENT DATE: 202010
